FAERS Safety Report 8788522 (Version 1)
Quarter: 2012Q4

REPORT INFORMATION
  Report Type: 
  Country: US (occurrence: US)
  Receive Date: 20120914
  Receipt Date: 20120914
  Transmission Date: 20130627
  Serious: No
  Sender: FDA-Public Use
  Company Number: US-VERTEX PHARMACEUTICAL INC.-AE-2012-010635

PATIENT
  Age: 55 None
  Sex: Male
  Weight: 84 kg

DRUGS (4)
  1. VX-950 [Suspect]
     Indication: HEPATITIS C
     Dosage: 750 mg, tid
     Route: 048
     Dates: start: 20120620, end: 20120816
  2. PEGINTRON REDIPEN [Concomitant]
     Indication: HEPATITIS C
     Dosage: 120 ?g, UNK
     Route: 058
     Dates: start: 20120620, end: 20120816
  3. RIBASPHERE [Concomitant]
     Indication: HEPATITIS C
     Dosage: 600 mg, bid
     Route: 048
     Dates: start: 20120710, end: 20120816
  4. TYLENOL [Concomitant]
     Indication: HEADACHE

REACTIONS (5)
  - Renal function test abnormal [Unknown]
  - Headache [Unknown]
  - Vision blurred [Recovered/Resolved]
  - Rash [Unknown]
  - Haemorrhoids [Recovered/Resolved]
